FAERS Safety Report 10240516 (Version 1)
Quarter: 2014Q2

REPORT INFORMATION
  Report Type: Spontaneous
  Country: US (occurrence: US)
  Receive Date: 20140617
  Receipt Date: 20140617
  Transmission Date: 20141212
  Serious: No
  Sender: FDA-Public Use
  Company Number: US-B.I. PHARMACEUTICALS,INC./RIDGEFIELD-2014-BI-25528BP

PATIENT
  Age: 72 Year
  Sex: Female

DRUGS (4)
  1. COMBIVENT [Suspect]
     Indication: EMPHYSEMA
     Dosage: DOSE PER APPLICATION: 20 MCG / 100 MCG DAILY DOSE: 4 TO 6 INHALATIONS
     Route: 055
     Dates: start: 201404
  2. SPIRONOLACTONE [Concomitant]
     Indication: POLYURIA
     Route: 048
     Dates: start: 2008
  3. CARVEDILOL [Concomitant]
     Indication: ATRIAL FIBRILLATION
     Dosage: 6.25
     Route: 048
     Dates: start: 2008
  4. WARFARIN [Concomitant]
     Indication: CEREBROVASCULAR ACCIDENT PROPHYLAXIS
     Route: 048
     Dates: start: 2008

REACTIONS (2)
  - Anxiety [Recovered/Resolved]
  - Dizziness [Recovered/Resolved]
